FAERS Safety Report 10034374 (Version 1)
Quarter: 2014Q1

REPORT INFORMATION
  Report Type: Spontaneous
  Country: CO (occurrence: CO)
  Receive Date: 20140325
  Receipt Date: 20140325
  Transmission Date: 20141002
  Serious: Yes (Death)
  Sender: FDA-Public Use
  Company Number: CO-SA-2014SA033881

PATIENT
  Age: 80 Year
  Sex: Female

DRUGS (1)
  1. THYROGEN [Suspect]
     Indication: THERAPEUTIC PROCEDURE
     Dosage: 2 VIALS
     Route: 065

REACTIONS (1)
  - Death [Fatal]
